FAERS Safety Report 4766517-5 (Version None)
Quarter: 2005Q3

REPORT INFORMATION
  Report Type: 
  Country: None (occurrence: None)
  Receive Date: 20050909
  Receipt Date: 20050831
  Transmission Date: 20060218
  Serious: Yes (Life-Threatening, Hospitalization)
  Sender: FDA-Public Use
  Company Number: ST-2005-008552

PATIENT
  Age: 60 Year
  Sex: Male
  Weight: 51.4 kg

DRUGS (1)
  1. OLMETEC [Suspect]
     Indication: HYPERTENSION
     Dosage: 20 MG QD PO
     Route: 048
     Dates: start: 20050426, end: 20050719

REACTIONS (3)
  - HYPERKALAEMIA [None]
  - MALAISE [None]
  - RENAL FAILURE ACUTE [None]
